FAERS Safety Report 5312335-9 (Version None)
Quarter: 2007Q2

REPORT INFORMATION
  Report Type: 
  Country: None (occurrence: None)
  Receive Date: 20070430
  Receipt Date: 20070420
  Transmission Date: 20071010
  Serious: Yes (Death, Life-Threatening, Hospitalization)
  Sender: FDA-Public Use
  Company Number: JP-MERCK-0702USA00291

PATIENT
  Age: 102 Year
  Sex: Male

DRUGS (8)
  1. PRIMAXIN [Suspect]
     Indication: PNEUMONIA
     Route: 042
     Dates: start: 20070122, end: 20070129
  2. PEPCID [Suspect]
     Indication: GASTROINTESTINAL ULCER
     Route: 042
     Dates: start: 20070122, end: 20070129
  3. [THERAPY UNSPECIFIED] [Concomitant]
     Indication: DEHYDRATION
     Route: 042
     Dates: start: 20070122, end: 20070129
  4. BISOLVON [Concomitant]
     Indication: PNEUMONIA
     Route: 041
     Dates: start: 20070127, end: 20070131
  5. LASIX [Concomitant]
     Indication: CARDIAC FAILURE
     Route: 042
     Dates: start: 20070123, end: 20070130
  6. ATARAX [Concomitant]
     Indication: INSOMNIA
     Route: 042
     Dates: start: 20070122, end: 20070129
  7. MEPTIN [Concomitant]
     Indication: PNEUMONIA
     Dates: start: 20070122, end: 20070129
  8. FRANDOL [Concomitant]
     Indication: HYPERTENSION
     Route: 061
     Dates: start: 20070122, end: 20070131

REACTIONS (4)
  - DISSEMINATED INTRAVASCULAR COAGULATION [None]
  - HYPERBILIRUBINAEMIA [None]
  - PLATELET COUNT DECREASED [None]
  - PNEUMONIA [None]
